FAERS Safety Report 9549075 (Version 6)
Quarter: 2014Q2

REPORT INFORMATION
  Report Type: Report from Study
  Country: US (occurrence: GB)
  Receive Date: 20130924
  Receipt Date: 20140610
  Transmission Date: 20141212
  Serious: Yes (Other)
  Sender: FDA-Public Use
  Company Number: US-ABBVIE-13P-167-1142411-00

PATIENT
  Age: 42 Year
  Sex: Female

DRUGS (13)
  1. NORVIR [Suspect]
     Indication: HIV INFECTION
     Route: 065
  2. NORVIR [Suspect]
     Dosage: DOSAGE FORM: UNSPECIFIED, FOR 2 YEARS
     Route: 065
  3. INTELENCE [Suspect]
     Indication: PRODUCT USED FOR UNKNOWN INDICATION
     Route: 048
  4. INTELENCE [Suspect]
     Route: 065
  5. INTELENCE [Suspect]
     Route: 065
  6. PREZISTA [Suspect]
     Indication: HIV INFECTION
     Route: 048
  7. ISENTRESS [Suspect]
     Indication: HIV INFECTION
     Route: 065
  8. ISENTRESS [Suspect]
     Route: 065
  9. APTIVUS [Suspect]
     Indication: HIV INFECTION
     Route: 065
  10. TRUVADA [Suspect]
     Indication: HIV INFECTION
     Route: 065
  11. ZIDOVUDINE [Suspect]
     Indication: ANTIVIRAL PROPHYLAXIS
     Dosage: TABS/CAPS
  12. PREDNISOLONE [Concomitant]
     Indication: PRODUCT USED FOR UNKNOWN INDICATION
     Dosage: DOSAGE FORM UNSPECIFIED
  13. NOVORAPID [Concomitant]
     Indication: GESTATIONAL DIABETES
     Dosage: DOSAGE FORM UNSPECIFIED

REACTIONS (2)
  - Gestational diabetes [Unknown]
  - Premature labour [Recovered/Resolved]
